FAERS Safety Report 9697233 (Version 2)
Quarter: 2013Q4

REPORT INFORMATION
  Report Type: Report from Study
  Country: ES (occurrence: ES)
  Receive Date: 20131120
  Receipt Date: 20131120
  Transmission Date: 20140711
  Serious: Yes (Other)
  Sender: FDA-Public Use
  Company Number: ES-ROCHE-1164082

PATIENT
  Sex: 0

DRUGS (1)
  1. BEVACIZUMAB [Suspect]
     Indication: MALIGNANT GLIOMA
     Route: 065

REACTIONS (8)
  - Thrombosis [Unknown]
  - Embolism [Unknown]
  - Infection [Unknown]
  - Asthenia [Unknown]
  - Diarrhoea [Unknown]
  - Neutropenia [Unknown]
  - Cognitive disorder [Unknown]
  - Haemorrhage [Unknown]
